FAERS Safety Report 6840881-5 (Version None)
Quarter: 2010Q3

REPORT INFORMATION
  Report Type: 
  Country: None (occurrence: None)
  Receive Date: 20100714
  Receipt Date: 20070619
  Transmission Date: 20110219
  Serious: No
  Sender: FDA-Public Use
  Company Number: US-PFIZER INC-2007052045

PATIENT
  Sex: Female
  Weight: 56.8 kg

DRUGS (3)
  1. CHANTIX [Suspect]
     Indication: SMOKING CESSATION THERAPY
     Dates: start: 20070512
  2. SYNTHROID [Concomitant]
     Indication: THYROID FUNCTION TEST ABNORMAL
  3. AVANDIA [Concomitant]
     Indication: DIABETES MELLITUS

REACTIONS (2)
  - HEADACHE [None]
  - NAUSEA [None]
